FAERS Safety Report 19152542 (Version 2)
Quarter: 2021Q2

REPORT INFORMATION
  Report Type: Spontaneous
  Country: JP (occurrence: JP)
  Receive Date: 20210419
  Receipt Date: 20210506
  Transmission Date: 20210717
  Serious: Yes (Hospitalization)
  Sender: FDA-Public Use
  Company Number: JP-GUERBET-JP-20210052

PATIENT
  Age: 82 Year
  Sex: Female

DRUGS (2)
  1. N?BUTYL?2?CYANOACRYLATE [Concomitant]
     Active Substance: UNSPECIFIED INGREDIENT
     Indication: THERAPEUTIC EMBOLISATION
     Dosage: LIPIODOL AND NBCA AT A RATIO OF 1:2 (TOTAL INJECTED VOLUME, 5 ML)
     Route: 042
  2. LIPIODOL [Suspect]
     Active Substance: ETHIODIZED OIL
     Indication: THERAPEUTIC EMBOLISATION
     Dosage: LIPIODOL AND NBCA AT A RATIO OF 1:2 (TOTAL INJECTED VOLUME, 5 ML)
     Route: 042

REACTIONS (2)
  - Product use in unapproved indication [Recovered/Resolved]
  - Deep vein thrombosis [Recovered/Resolved]
